FAERS Safety Report 8697543 (Version 3)
Quarter: 2013Q4

REPORT INFORMATION
  Report Type: Spontaneous
  Country: US (occurrence: US)
  Receive Date: 20120801
  Receipt Date: 20131101
  Transmission Date: 20140711
  Serious: No
  Sender: FDA-Public Use
  Company Number: US-009507513-1207USA006530

PATIENT
  Sex: Male

DRUGS (3)
  1. MIRALAX [Suspect]
     Indication: CONSTIPATION
     Dosage: UNK UNK, QD
     Route: 048
     Dates: start: 20120509
  2. MIRALAX [Suspect]
     Indication: MEDICAL OBSERVATION
     Dosage: 27.6 G, QD
     Route: 048
  3. OXYGEN [Concomitant]
     Indication: FIBROMA
     Dosage: UNK, UNKNOWN

REACTIONS (2)
  - Prescribed overdose [Unknown]
  - Drug ineffective [Unknown]
